FAERS Safety Report 9433422 (Version 1)
Quarter: 2013Q3

REPORT INFORMATION
  Report Type: Spontaneous
  Country: SE (occurrence: SE)
  Receive Date: 20130731
  Receipt Date: 20130731
  Transmission Date: 20140515
  Serious: Yes (Hospitalization)
  Sender: FDA-Public Use
  Company Number: SE-ASTRAZENECA-2013SE50357

PATIENT
  Age: 46 Year
  Sex: Female
  Weight: 88.5 kg

DRUGS (7)
  1. NEXIUM [Suspect]
     Indication: PROPHYLAXIS
     Route: 042
     Dates: start: 20130618, end: 20130624
  2. NEXIUM [Suspect]
     Indication: PROPHYLAXIS
     Route: 042
     Dates: start: 20130629
  3. NEXIUM [Suspect]
     Indication: PROPHYLAXIS
     Dosage: FOR ONE DAY
     Route: 042
  4. NEXIUM [Suspect]
     Indication: PROPHYLAXIS
     Dosage: FOR ONE DAY
     Route: 042
  5. NEXIUM [Suspect]
     Indication: PROPHYLAXIS
     Route: 048
  6. ANTIBIOTICS [Suspect]
     Route: 065
     Dates: end: 201306
  7. OTHER DRUGS [Concomitant]

REACTIONS (3)
  - Pyrexia [Recovering/Resolving]
  - Inflammatory marker increased [Recovering/Resolving]
  - Respiratory failure [Recovered/Resolved]
